FAERS Safety Report 4677436-7 (Version None)
Quarter: 2005Q2

REPORT INFORMATION
  Report Type: 
  Country: None (occurrence: None)
  Receive Date: 20050531
  Receipt Date: 20041228
  Transmission Date: 20051028
  Serious: Yes (Other)
  Sender: FDA-Public Use
  Company Number: JP-BOEHRINGER INGELHEIM PHARMACEUTICALS, INC.-2005-BP-00425NB

PATIENT
  Age: 60 Year
  Sex: Female

DRUGS (4)
  1. MICARDIS [Suspect]
     Indication: HYPERTENSION
     Route: 048
     Dates: start: 20030423, end: 20041215
  2. TENORMIN [Concomitant]
     Route: 048
     Dates: start: 20040724, end: 20041213
  3. NORVASC [Concomitant]
     Route: 048
     Dates: start: 20040922
  4. PHOSBLOCK (SEVELAMER HYDROCHLORIDE) [Concomitant]
     Route: 048

REACTIONS (2)
  - BLOOD PRESSURE INCREASED [None]
  - BRADYCARDIA [None]
